FAERS Safety Report 17560812 (Version 1)
Quarter: 2020Q1

REPORT INFORMATION
  Report Type: Spontaneous
  Country: US (occurrence: US)
  Receive Date: 20200319
  Receipt Date: 20200319
  Transmission Date: 20200409
  Serious: Yes (Hospitalization)
  Sender: FDA-Public Use
  Company Number: US-MYLANLABS-2020M1029289

PATIENT
  Age: 60 Year
  Sex: Female

DRUGS (4)
  1. HEPARIN [Suspect]
     Active Substance: HEPARIN SODIUM
     Indication: ANTICOAGULANT THERAPY
     Dosage: STARTED ON POSTOPERATIVE DAY 1
     Route: 065
  2. WARFARIN [Suspect]
     Active Substance: WARFARIN
     Indication: ANTICOAGULANT THERAPY
     Dosage: WARFARIN WAS INITIATED 4 DAYS POST IMPLANTATION
     Route: 065
  3. PREDNISONE. [Suspect]
     Active Substance: PREDNISONE
     Indication: SYSTEMIC LUPUS ERYTHEMATOSUS
     Dosage: SHE HAD BEEN RECEIVING PREDNISONE AS A SOLE AGENT FOR 5 YEARS BEFORE THE CURRENT PRESENTATION
     Route: 065
  4. MILRINONE [Concomitant]
     Active Substance: MILRINONE
     Indication: PRODUCT USED FOR UNKNOWN INDICATION
     Dosage: 0.25 MICROG/KG/MIN
     Route: 042

REACTIONS (8)
  - Peritoneal haemorrhage [Unknown]
  - Haemoglobin decreased [Unknown]
  - Haematoma [Unknown]
  - Abdominal wall haematoma [Unknown]
  - Presyncope [Unknown]
  - Hypotension [Unknown]
  - Haemorrhage [Unknown]
  - Bladder obstruction [Unknown]
